FAERS Safety Report 5551998-X (Version None)
Quarter: 2007Q4

REPORT INFORMATION
  Report Type: 
  Country: None (occurrence: None)
  Receive Date: 20071212
  Receipt Date: 20071130
  Transmission Date: 20080405
  Serious: Yes (Life-Threatening, Hospitalization)
  Sender: FDA-Public Use
  Company Number: FR-PFIZER INC-2007102266

PATIENT
  Age: 23 Year
  Sex: Female

DRUGS (3)
  1. CHAMPIX [Suspect]
  2. ORAL CONTRACEPTIVE NOS [Concomitant]
  3. ALL OTHER THERAPEUTIC PRODUCTS [Concomitant]
     Route: 048

REACTIONS (1)
  - VENTRICULAR FIBRILLATION [None]
